FAERS Safety Report 13029001 (Version 2)
Quarter: 2016Q4

REPORT INFORMATION
  Report Type: Spontaneous
  Country: FR (occurrence: FR)
  Receive Date: 20161214
  Receipt Date: 20161219
  Transmission Date: 20170207
  Serious: Yes (Other)
  Sender: FDA-Public Use
  Company Number: FR-AMGEN-FRASP2016176157

PATIENT
  Age: 72 Year
  Sex: Male

DRUGS (2)
  1. ENBREL [Suspect]
     Active Substance: ETANERCEPT
     Indication: SPONDYLOARTHROPATHY
     Dosage: UNK
     Route: 058
     Dates: start: 20050728, end: 201603
  2. HUMIRA [Suspect]
     Active Substance: ADALIMUMAB
     Indication: SPONDYLOARTHROPATHY
     Dosage: UNK
     Route: 058
     Dates: start: 201603, end: 201607

REACTIONS (2)
  - Lung adenocarcinoma [Not Recovered/Not Resolved]
  - Pustular psoriasis [Unknown]

NARRATIVE: CASE EVENT DATE: 201603
